FAERS Safety Report 15818787 (Version 2)
Quarter: 2019Q1

REPORT INFORMATION
  Report Type: Not Available
  Country: US (occurrence: US)
  Receive Date: 20190113
  Receipt Date: 20190313
  Transmission Date: 20190417
  Serious: No
  Sender: FDA-Public Use
  Company Number: US-NEUROCRINE BIOSCIENCES INC.-2019NBI00019

PATIENT
  Age: 68 Year
  Sex: Female

DRUGS (12)
  1. VITAMIN E [Concomitant]
     Active Substance: .ALPHA.-TOCOPHEROL
  2. INGREZZA [Suspect]
     Active Substance: VALBENAZINE
     Indication: TARDIVE DYSKINESIA
     Route: 048
     Dates: start: 20181226, end: 20190121
  3. ONDANSETRON [Concomitant]
     Active Substance: ONDANSETRON
  4. METAMUCIL [Concomitant]
     Active Substance: PLANTAGO SEED
  5. GABAPENTIN. [Concomitant]
     Active Substance: GABAPENTIN
  6. SIMVASTATIN. [Concomitant]
     Active Substance: SIMVASTATIN
  7. TRAMADOL. [Concomitant]
     Active Substance: TRAMADOL
  8. RANITIDINE. [Concomitant]
     Active Substance: RANITIDINE
  9. HYOSCYAMINE. [Concomitant]
     Active Substance: HYOSCYAMINE
  10. COQ10 [Concomitant]
     Active Substance: UBIDECARENONE
  11. INGREZZA [Suspect]
     Active Substance: VALBENAZINE
     Route: 048
     Dates: start: 20190122, end: 20190130
  12. QUETIAPINE. [Concomitant]
     Active Substance: QUETIAPINE

REACTIONS (7)
  - Energy increased [Not Recovered/Not Resolved]
  - Insomnia [Not Recovered/Not Resolved]
  - Abdominal pain upper [Not Recovered/Not Resolved]
  - Lip swelling [Unknown]
  - Dyspnoea [Unknown]
  - Anxiety [Not Recovered/Not Resolved]
  - Mouth swelling [Unknown]

NARRATIVE: CASE EVENT DATE: 201812
